FAERS Safety Report 9343046 (Version 1)
Quarter: 2013Q2

REPORT INFORMATION
  Report Type: Spontaneous
  Country: US (occurrence: US)
  Receive Date: 20130611
  Receipt Date: 20130611
  Transmission Date: 20140414
  Serious: No
  Sender: FDA-Public Use
  Company Number: US-009507513-1306USA002597

PATIENT
  Age: 35 Year
  Sex: Male

DRUGS (2)
  1. SAPHRIS [Suspect]
     Indication: BIPOLAR DISORDER
     Dosage: 10 MG, HS
     Route: 060
     Dates: start: 20130528
  2. KLONOPIN [Concomitant]

REACTIONS (2)
  - Leukoplakia oral [Unknown]
  - Inappropriate schedule of drug administration [Unknown]
